FAERS Safety Report 8327546-8 (Version None)
Quarter: 2012Q2

REPORT INFORMATION
  Report Type: 
  Country: None (occurrence: None)
  Receive Date: 20120502
  Receipt Date: 20120425
  Transmission Date: 20120825
  Serious: Yes (Death, Hospitalization)
  Sender: FDA-Public Use
  Company Number: US-BAYER-201042031NA

PATIENT
  Age: 45 Year
  Sex: Female
  Weight: 76.644 kg

DRUGS (8)
  1. YASMIN [Suspect]
     Indication: CONTRACEPTION
     Dosage: UNK
     Route: 048
     Dates: start: 20040101, end: 20070101
  2. CLINDESSE [Concomitant]
     Dosage: 2 [PERCENT]
     Route: 067
  3. FLUCONAZOLE [Concomitant]
     Dosage: 150 MG, UNK
     Route: 048
     Dates: start: 20060819, end: 20061220
  4. ALLEGRA [Concomitant]
     Dosage: 180 MG DAILY
     Route: 048
  5. PREDNISONE [Concomitant]
     Dosage: 1 TABLET DAILY
     Route: 048
  6. TOPAMAX [Concomitant]
     Dosage: 100 MG, BID
     Route: 048
  7. YAZ [Suspect]
     Indication: CONTRACEPTION
     Dosage: UNK
     Route: 048
     Dates: start: 20040101, end: 20070101
  8. IMITREX [Concomitant]
     Indication: HEADACHE
     Dosage: 100 MG, PRN
     Route: 048

REACTIONS (2)
  - PULMONARY EMBOLISM [None]
  - INJURY [None]
